FAERS Safety Report 4865781-1 (Version None)
Quarter: 2005Q4

REPORT INFORMATION
  Report Type: 
  Country: None (occurrence: None)
  Receive Date: 20051220
  Receipt Date: 20051208
  Transmission Date: 20060501
  Serious: Yes (Hospitalization)
  Sender: FDA-Public Use
  Company Number: 2005167425

PATIENT
  Age: 35 Year
  Sex: Female

DRUGS (5)
  1. NEURONTIN [Suspect]
     Indication: MULTIPLE SCLEROSIS
     Dosage: 3600 MG
     Dates: start: 20030101
  2. BACLOFEN [Concomitant]
  3. HEXAQUINE (NIAOULI OIL, QUININE BENZOATE, THIAMINE HYDROCHLORIDE) [Concomitant]
  4. XATRAL (ALFUZOSIN) [Concomitant]
  5. DITROPAN [Concomitant]

REACTIONS (2)
  - LOW DENSITY LIPOPROTEIN INCREASED [None]
  - MULTIPLE SCLEROSIS [None]
